FAERS Safety Report 5069603-8 (Version None)
Quarter: 2006Q3

REPORT INFORMATION
  Report Type: 
  Country: None (occurrence: None)
  Receive Date: 20060803
  Receipt Date: 20060724
  Transmission Date: 20061208
  Serious: Yes (Life-Threatening, Hospitalization, Other)
  Sender: FDA-Public Use
  Company Number: JP-BRISTOL-MYERS SQUIBB COMPANY-13456827

PATIENT
  Age: 20 Year
  Sex: Male

DRUGS (26)
  1. ENDOXAN [Suspect]
     Indication: BONE MARROW CONDITIONING REGIMEN
     Route: 041
     Dates: start: 20050505, end: 20050507
  2. LYMPHOGLOBULINE [Suspect]
     Indication: BONE MARROW CONDITIONING REGIMEN
     Route: 041
     Dates: start: 20050505, end: 20050507
  3. UROMITEXAN [Concomitant]
     Dates: start: 20050505, end: 20050507
  4. BACTRIM [Concomitant]
     Dates: start: 20050327
  5. FLUDARA [Concomitant]
     Dates: start: 20050505, end: 20050509
  6. SOLU-MEDROL [Concomitant]
     Dates: start: 20050505, end: 20050507
  7. URSO [Concomitant]
     Dates: start: 20050503
  8. LIPLE [Concomitant]
     Dates: start: 20050507
  9. GASTER [Concomitant]
     Dates: start: 20050504
  10. KYTRIL [Concomitant]
     Dates: start: 20060505
  11. CRAVIT [Concomitant]
     Dates: start: 20050428
  12. RIFAMPICIN [Concomitant]
     Dates: start: 20060402
  13. FUNGIZONE [Concomitant]
     Dates: start: 20050416
  14. VALTREX [Concomitant]
     Dates: start: 20050504
  15. DENOSINE [Concomitant]
     Dates: start: 20050504
  16. TARGOCID [Concomitant]
     Dates: start: 20050429
  17. CARBENIN [Concomitant]
     Dates: start: 20050417
  18. MEYLON [Concomitant]
     Dates: start: 20050506
  19. MINOCYCLINE HCL [Concomitant]
     Dates: start: 20050504
  20. METILON [Concomitant]
     Dates: start: 20050505, end: 20050807
  21. DIAMOX [Concomitant]
     Dates: start: 20050504, end: 20050807
  22. ALBUMIN [Concomitant]
     Dates: start: 20050505, end: 20050506
  23. METHOTREXATE [Concomitant]
  24. ANTITHYMOCYTE GLOBULIN [Concomitant]
  25. CYCLOSPORINE [Concomitant]
  26. FUNGUARD [Concomitant]
     Dates: start: 20050417

REACTIONS (6)
  - GRAFT VERSUS HOST DISEASE [None]
  - HYPONATRAEMIA [None]
  - MUCOUS MEMBRANE DISORDER [None]
  - PYREXIA [None]
  - RECTAL HAEMORRHAGE [None]
  - RENAL TUBULAR ACIDOSIS [None]
